FAERS Safety Report 16056764 (Version 1)
Quarter: 2019Q1

REPORT INFORMATION
  Report Type: Spontaneous
  Country: CN (occurrence: CN)
  Receive Date: 20190311
  Receipt Date: 20190311
  Transmission Date: 20190418
  Serious: Yes (Other)
  Sender: FDA-Public Use
  Company Number: CN-PFIZER INC-2019098970

PATIENT
  Age: 62 Year
  Sex: Male
  Weight: 75 kg

DRUGS (12)
  1. CLOPIDOGREL BISULFATE. [Concomitant]
     Active Substance: CLOPIDOGREL BISULFATE
     Indication: THROMBOSIS PROPHYLAXIS
     Dosage: 50 MG, 1X/DAY
     Route: 048
     Dates: start: 20190218, end: 20190222
  2. ASPIRIN (E.C.) [Concomitant]
     Active Substance: ASPIRIN
     Indication: THROMBOSIS PROPHYLAXIS
     Dosage: 100 MG, 1X/DAY
     Route: 048
     Dates: start: 20190218, end: 20190222
  3. LOW MOLECULAR WEIGHT HEPARIN SODIUM [Concomitant]
     Active Substance: HEPARIN SODIUM
     Indication: COAGULOPATHY
     Dosage: 4250 IU, 1X/DAY
     Route: 058
     Dates: start: 20190222, end: 20190301
  4. SODIUM CHLORIDE. [Concomitant]
     Active Substance: SODIUM CHLORIDE
     Dosage: 100 ML, 2X/DAY
     Route: 041
     Dates: start: 20190218, end: 20190304
  5. DA BEI [Concomitant]
     Indication: CEREBRAL INFARCTION
     Dosage: 20 ML, 2X/DAY
     Route: 042
     Dates: start: 20190218, end: 20190221
  6. LIPITOR [Suspect]
     Active Substance: ATORVASTATIN CALCIUM
     Indication: ARTERIOSCLEROSIS
     Dosage: 20 MG, 1X/DAY
     Route: 048
     Dates: start: 20190218, end: 20190227
  7. EDARAVONE [Concomitant]
     Active Substance: EDARAVONE
     Indication: THERAPEUTIC PROCEDURE
     Dosage: 30 MG, 2X/DAY
     Route: 041
     Dates: start: 20190218, end: 20190304
  8. SODIUM CHLORIDE. [Concomitant]
     Active Substance: SODIUM CHLORIDE
     Dosage: 100 ML, 1X/DAY
     Route: 041
     Dates: start: 20190218, end: 20190222
  9. LANSOPRAZOLE. [Concomitant]
     Active Substance: LANSOPRAZOLE
     Indication: MUSCLE SPASMS
  10. DIOVAN [Concomitant]
     Active Substance: VALSARTAN
     Indication: HYPERTENSION
     Dosage: 80 MG, 1X/DAY
     Route: 048
     Dates: start: 20190224, end: 20190304
  11. SODIUM CHLORIDE. [Concomitant]
     Active Substance: SODIUM CHLORIDE
     Indication: VEHICLE SOLUTION USE
     Dosage: 28 ML, 2X/DAY
     Route: 042
     Dates: start: 20190218, end: 20190221
  12. LANSOPRAZOLE. [Concomitant]
     Active Substance: LANSOPRAZOLE
     Indication: ACID BASE BALANCE ABNORMAL
     Dosage: 30 MG, 1X/DAY
     Route: 041
     Dates: start: 20190218, end: 20190222

REACTIONS (2)
  - Hepatic enzyme increased [Recovering/Resolving]
  - Hepatitis B surface antigen positive [Unknown]

NARRATIVE: CASE EVENT DATE: 20190219
